FAERS Safety Report 8074668-5 (Version None)
Quarter: 2012Q1

REPORT INFORMATION
  Report Type: 
  Country: None (occurrence: None)
  Receive Date: 20120126
  Receipt Date: 20120120
  Transmission Date: 20120608
  Serious: Yes (Other)
  Sender: FDA-Public Use
  Company Number: US-PFIZER INC-2011293306

PATIENT
  Sex: Female

DRUGS (4)
  1. LANTUS [Suspect]
     Dosage: 60 IU, 1X/DAY
     Route: 058
     Dates: start: 20100101
  2. NOVOLOG [Concomitant]
     Dosage: UNK
  3. GLIPIZIDE [Suspect]
     Dosage: UNK
  4. LEVOTHYROXINE [Concomitant]
     Dosage: UNK
     Dates: start: 20110101, end: 20110101

REACTIONS (7)
  - BLOOD GLUCOSE INCREASED [None]
  - PAIN IN EXTREMITY [None]
  - MEMORY IMPAIRMENT [None]
  - AGITATION [None]
  - INFLUENZA [None]
  - BLOOD GLUCOSE DECREASED [None]
  - WEIGHT DECREASED [None]
